FAERS Safety Report 5572006-0 (Version None)
Quarter: 2007Q4

REPORT INFORMATION
  Report Type: 
  Country: None (occurrence: None)
  Receive Date: 20071221
  Receipt Date: 20071127
  Transmission Date: 20080405
  Serious: No
  Sender: FDA-Public Use
  Company Number: US-BOEHRINGER INGELHEIM PHARMACEUTICALS, INC.-2007-BP-23746BP

PATIENT
  Sex: Male

DRUGS (12)
  1. MIRAPEX [Suspect]
     Indication: RESTLESS LEGS SYNDROME
     Route: 048
     Dates: start: 20071021, end: 20071026
  2. MIRAPEX [Suspect]
     Indication: NEUROPATHY
     Route: 048
     Dates: start: 20071019, end: 20071020
  3. POTASSIUM CHLORIDE [Concomitant]
  4. CAPTOPRIL [Concomitant]
     Route: 048
  5. FUROSEMIDE [Concomitant]
     Route: 048
  6. ALBUTEROL [Concomitant]
     Route: 055
  7. BUPROPION HCL [Concomitant]
     Route: 048
  8. PROVIGIL [Concomitant]
     Route: 048
  9. INSULIN DETEMIR [Concomitant]
     Route: 058
  10. INSULIN ASPART [Concomitant]
     Route: 058
  11. OXYCODONE HCL [Concomitant]
     Route: 048
  12. LACTULOSE [Concomitant]
     Route: 048

REACTIONS (4)
  - CERVICAL SPINAL STENOSIS [None]
  - MUSCULOSKELETAL PAIN [None]
  - PAIN [None]
  - PAIN IN EXTREMITY [None]
